FAERS Safety Report 13376594 (Version 1)
Quarter: 2017Q1

REPORT INFORMATION
  Report Type: Report from Study
  Country: BE (occurrence: BE)
  Receive Date: 20170328
  Receipt Date: 20170328
  Transmission Date: 20170429
  Serious: Yes (Other)
  Sender: FDA-Public Use
  Company Number: BE-TEVA-752734ROM

PATIENT
  Sex: Female

DRUGS (1)
  1. COPAXONE [Suspect]
     Active Substance: GLATIRAMER ACETATE
     Indication: MULTIPLE SCLEROSIS
     Route: 058
     Dates: start: 20160224, end: 20170318

REACTIONS (2)
  - Embolia cutis medicamentosa [Not Recovered/Not Resolved]
  - Injection site necrosis [Not Recovered/Not Resolved]
